FAERS Safety Report 5478048-8 (Version None)
Quarter: 2007Q4

REPORT INFORMATION
  Report Type: 
  Country: None (occurrence: None)
  Receive Date: 20071005
  Receipt Date: 20060905
  Transmission Date: 20080405
  Serious: No
  Sender: FDA-Public Use
  Company Number: US-BRISTOL-MYERS SQUIBB COMPANY-13499074

PATIENT
  Age: 71 Year
  Sex: Female
  Weight: 63 kg

DRUGS (6)
  1. AVAPRO [Suspect]
     Indication: HYPERTENSION
  2. LIPITOR [Concomitant]
  3. ATENOLOL [Concomitant]
  4. CENTRUM [Concomitant]
  5. ECOTRIN [Concomitant]
  6. POTASSIUM CHLORIDE [Concomitant]

REACTIONS (3)
  - BURNING SENSATION [None]
  - PAIN IN EXTREMITY [None]
  - PARAESTHESIA [None]
